FAERS Safety Report 12665900 (Version 1)
Quarter: 2016Q3

REPORT INFORMATION
  Report Type: Spontaneous
  Country: US (occurrence: US)
  Receive Date: 20160818
  Receipt Date: 20160818
  Transmission Date: 20161109
  Serious: No
  Sender: FDA-Public Use
  Company Number: US-ALLERGAN-1660167US

PATIENT
  Age: 45 Year
  Sex: Female
  Weight: 102.4 kg

DRUGS (2)
  1. KYBELLA [Suspect]
     Active Substance: DEOXYCHOLIC ACID
     Indication: FAT TISSUE INCREASED
     Dosage: 4 ML, SINGLE
     Route: 058
     Dates: start: 20160606, end: 20160606
  2. ACZONE [Concomitant]
     Active Substance: DAPSONE
     Indication: ACNE
     Dosage: UNK
     Route: 061

REACTIONS (4)
  - Dysgeusia [Not Recovered/Not Resolved]
  - Ear pain [Not Recovered/Not Resolved]
  - Facial paralysis [Not Recovered/Not Resolved]
  - Dysphagia [Not Recovered/Not Resolved]

NARRATIVE: CASE EVENT DATE: 20160611
